FAERS Safety Report 7875408-2 (Version None)
Quarter: 2011Q4

REPORT INFORMATION
  Report Type: 
  Country: None (occurrence: None)
  Receive Date: 20111031
  Receipt Date: 20111019
  Transmission Date: 20120403
  Serious: Yes (Hospitalization, Other)
  Sender: FDA-Public Use
  Company Number: PHHY2011BE83212

PATIENT
  Sex: Female

DRUGS (5)
  1. EXELON [Suspect]
     Indication: DEMENTIA ALZHEIMER'S TYPE
     Dosage: 4.6 MG, UNK
     Route: 062
     Dates: start: 20110501, end: 20110701
  2. ALDACTAZIDE [Concomitant]
     Dosage: UNK UKN, UNK
  3. EXELON [Suspect]
     Dosage: 9.5 MG, UNK
     Route: 062
     Dates: start: 20110701, end: 20110725
  4. PRAVASTATIN [Concomitant]
     Dosage: 40 MG, DAILY
  5. BETAHISTINE [Concomitant]
     Indication: DIZZINESS
     Dosage: UNK UKN, UNK

REACTIONS (15)
  - DIARRHOEA [None]
  - GASTRIC ULCER [None]
  - NAUSEA [None]
  - MEMORY IMPAIRMENT [None]
  - FAECAL INCONTINENCE [None]
  - DEMENTIA ALZHEIMER'S TYPE [None]
  - APPLICATION SITE PRURITUS [None]
  - MINI MENTAL STATUS EXAMINATION ABNORMAL [None]
  - VITAMIN B12 DEFICIENCY [None]
  - APPLICATION SITE ERYTHEMA [None]
  - COLITIS MICROSCOPIC [None]
  - FOLATE DEFICIENCY [None]
  - FAECALOMA [None]
  - DISORIENTATION [None]
  - CONSTIPATION [None]
